FAERS Safety Report 14570709 (Version 1)
Quarter: 2018Q1

REPORT INFORMATION
  Report Type: Report from Study
  Country: NZ (occurrence: NZ)
  Receive Date: 20180226
  Receipt Date: 20180226
  Transmission Date: 20180509
  Serious: Yes (Other)
  Sender: FDA-Public Use
  Company Number: NZ-CIPLA LTD.-2018NZ06874

PATIENT

DRUGS (3)
  1. CARBOPLATIN. [Suspect]
     Active Substance: CARBOPLATIN
     Indication: NON-SMALL CELL LUNG CANCER METASTATIC
     Dosage: AUC = 6 MG/ML PER MIN, FOR UP TO 6 TREATMENT CYCLES
     Route: 065
  2. DEMCIZUMAB [Suspect]
     Active Substance: DEMCIZUMAB
     Indication: NON-SMALL CELL LUNG CANCER METASTATIC
     Dosage: UNK
     Route: 065
  3. PEMETREXED. [Suspect]
     Active Substance: PEMETREXED
     Indication: NON-SMALL CELL LUNG CANCER METASTATIC
     Dosage: 500 MG/M2, FOR UP TO 6 TREATMENT CYCLES
     Route: 065

REACTIONS (1)
  - Brain natriuretic peptide increased [Unknown]
